FAERS Safety Report 18609829 (Version 1)
Quarter: 2020Q4

REPORT INFORMATION
  Report Type: Spontaneous
  Country: US (occurrence: US)
  Receive Date: 20201214
  Receipt Date: 20201214
  Transmission Date: 20210114
  Serious: No
  Sender: FDA-Public Use
  Company Number: US-TEVA-2020-US-1855958

PATIENT
  Sex: Female

DRUGS (5)
  1. ATENOLOL 100 % POWDER, [Concomitant]
  2. HYDROCODONE BITARTRATE 100 % POWDER [Concomitant]
  3. AUSTEDO [Suspect]
     Active Substance: DEUTETRABENAZINE
     Indication: HUNTINGTON^S DISEASE
     Dosage: 30 MILLIGRAM DAILY; TAKE A 9 MG TABLET TWICE DAILY WITH A 6 MG TAB (15 MG TWICE A DAY).
     Route: 048
     Dates: start: 2019
  4. AMLODIPINE BESILATE 100 % POWDER [Concomitant]
  5. AIRBORNE 1000-50 MG TABLET EFF [Concomitant]

REACTIONS (1)
  - Pain [Unknown]
